FAERS Safety Report 7831123-2 (Version None)
Quarter: 2011Q4

REPORT INFORMATION
  Report Type: 
  Country: None (occurrence: None)
  Receive Date: 20111021
  Receipt Date: 20111017
  Transmission Date: 20120403
  Serious: No
  Sender: FDA-Public Use
  Company Number: US-B.I. PHARMACEUTICALS,INC./RIDGEFIELD-2011-BP-24569BP

PATIENT
  Sex: Male

DRUGS (3)
  1. WARFARIN SODIUM [Concomitant]
     Indication: PROPHYLAXIS
     Dosage: 5 MG
     Route: 048
  2. PROPRANOLOL [Concomitant]
     Indication: HEADACHE
     Route: 048
  3. ZANTAC 75 [Suspect]
     Indication: GASTROOESOPHAGEAL REFLUX DISEASE
     Dosage: 150 MG
     Route: 048
     Dates: start: 20111001

REACTIONS (1)
  - FLATULENCE [None]
